FAERS Safety Report 17218900 (Version 7)
Quarter: 2021Q1

REPORT INFORMATION
  Report Type: Spontaneous
  Country: JP (occurrence: JP)
  Receive Date: 20191231
  Receipt Date: 20210108
  Transmission Date: 20210419
  Serious: Yes (Death, Hospitalization)
  Sender: FDA-Public Use
  Company Number: JP-BAYER-2019-236199

PATIENT
  Age: 67 Year
  Sex: Female
  Weight: 33.5 kg

DRUGS (3)
  1. NEXAVAR [Suspect]
     Active Substance: SORAFENIB
     Indication: PAPILLARY THYROID CANCER
     Dosage: DAILY DOSE 400 MG
     Route: 048
     Dates: start: 20190723, end: 20191030
  2. THYRADIN S [Concomitant]
     Active Substance: LEVOTHYROXINE SODIUM
     Indication: HYPOTHYROIDISM
     Dosage: DAILY DOSE 50 MG
     Route: 048
     Dates: start: 20190816, end: 20191027
  3. UREPEARL [Concomitant]
     Active Substance: UREA
     Indication: DRUG TOXICITY PROPHYLAXIS
     Dosage: UNK
     Dates: start: 20190802, end: 20191027

REACTIONS (8)
  - Dysphagia [Fatal]
  - Carotid artery perforation [Fatal]
  - Oropharyngeal pain [None]
  - Pharyngeal fistula [Fatal]
  - Haematemesis [Fatal]
  - Papillary thyroid cancer [Fatal]
  - Off label use [None]
  - Constipation [None]

NARRATIVE: CASE EVENT DATE: 20190723
